FAERS Safety Report 12548094 (Version 1)
Quarter: 2016Q3

REPORT INFORMATION
  Report Type: Spontaneous
  Country: US (occurrence: US)
  Receive Date: 20160712
  Receipt Date: 20160712
  Transmission Date: 20161109
  Serious: No
  Sender: FDA-Public Use
  Company Number: US-BAYER-2016-135761

PATIENT
  Age: 26 Year
  Sex: Female
  Weight: 72.56 kg

DRUGS (1)
  1. MIRALAX [Suspect]
     Active Substance: POLYETHYLENE GLYCOL 3350
     Indication: IRRITABLE BOWEL SYNDROME
     Dosage: 1-2 DF, EVERY 3-4 DAYS
     Route: 048
     Dates: start: 2004

REACTIONS (3)
  - Maternal exposure during pregnancy [None]
  - Product use issue [None]
  - Product use issue [None]

NARRATIVE: CASE EVENT DATE: 2004
